FAERS Safety Report 6887374-7 (Version None)
Quarter: 2010Q3

REPORT INFORMATION
  Report Type: 
  Country: None (occurrence: None)
  Receive Date: 20100730
  Receipt Date: 20091124
  Transmission Date: 20110219
  Serious: No
  Sender: FDA-Public Use
  Company Number: A0826659A

PATIENT
  Age: 47 Year
  Sex: Female

DRUGS (10)
  1. IMITREX [Suspect]
     Indication: MIGRAINE
     Route: 048
     Dates: start: 20010101, end: 20010101
  2. IMITREX [Suspect]
     Route: 058
  3. PLAVIX [Concomitant]
  4. CYMBALTA [Concomitant]
  5. TOPAMAX [Concomitant]
  6. LOPRESSOR [Concomitant]
  7. NEXIUM [Concomitant]
  8. EVISTA [Concomitant]
  9. ASPIRIN [Concomitant]
  10. XANAX [Concomitant]

REACTIONS (4)
  - CONTUSION [None]
  - FEELING ABNORMAL [None]
  - SENSATION OF BLOOD FLOW [None]
  - VOMITING [None]
